FAERS Safety Report 11592581 (Version 1)
Quarter: 2015Q4

REPORT INFORMATION
  Report Type: Spontaneous
  Country: US (occurrence: US)
  Receive Date: 20151005
  Receipt Date: 20151005
  Transmission Date: 20160304
  Serious: Yes (Death, Hospitalization)
  Sender: FDA-Public Use
  Company Number: US-AUROBINDO-AUR-APL-2011-05923

PATIENT
  Age: 50 Year
  Sex: Female

DRUGS (5)
  1. BUPROPION XL [Suspect]
     Active Substance: BUPROPION
     Indication: PRODUCT USED FOR UNKNOWN INDICATION
     Dosage: UNK UNK,UNK,
     Route: 065
  2. FAT EMULSION NOS [Suspect]
     Active Substance: EGG PHOSPHOLIPIDS\SAFFLOWER OIL\SOYBEAN OIL
     Indication: CARDIOGENIC SHOCK
     Dosage: UNK UNK,UNK,
     Route: 065
  3. METOPROLOL TARTRATE TABLETS USP 25 MG [Suspect]
     Active Substance: METOPROLOL TARTRATE
     Indication: PRODUCT USED FOR UNKNOWN INDICATION
     Dosage: UNK UNK,UNK,
     Route: 065
  4. FENOFIBRATE. [Concomitant]
     Active Substance: FENOFIBRATE
     Indication: PRODUCT USED FOR UNKNOWN INDICATION
     Dosage: UNK UNK,UNK,
     Route: 065
  5. HIGH DOSE INSULIN [Interacting]
     Active Substance: INSULIN NOS
     Indication: CARDIOGENIC SHOCK
     Dosage: UNK UNK,UNK,
     Route: 065

REACTIONS (11)
  - Bradycardia [Unknown]
  - Suicide attempt [Unknown]
  - Somnolence [Unknown]
  - Cardiac arrest [Unknown]
  - Cardiogenic shock [Unknown]
  - Hypotension [Unknown]
  - Drug interaction [Unknown]
  - Seizure [Unknown]
  - Multi-organ failure [Fatal]
  - Condition aggravated [Unknown]
  - Overdose [Unknown]
